FAERS Safety Report 4690953-9 (Version None)
Quarter: 2005Q2

REPORT INFORMATION
  Report Type: 
  Country: None (occurrence: None)
  Receive Date: 20050610
  Receipt Date: 20050531
  Transmission Date: 20051028
  Serious: Yes (Disabling)
  Sender: FDA-Public Use
  Company Number: 11386

PATIENT
  Age: 75 Year
  Sex: Female

DRUGS (6)
  1. AMIODARONE [Suspect]
     Indication: CARDIOVERSION
     Dosage: 300 MG PO
     Route: 048
     Dates: start: 20050214
  2. ATORVASTATIN CALCIUM [Suspect]
     Indication: CARDIOVERSION
     Dosage: 40 MG PO
     Route: 048
     Dates: start: 20050214, end: 20050320
  3. DIGOXIN [Concomitant]
  4. BENDROFLUAZIDE [Concomitant]
  5. SODIUM BICARBONATE/CALCIUM [Concomitant]
  6. WARFARIN SODIUM [Concomitant]

REACTIONS (2)
  - ASTHENIA [None]
  - MUSCLE ATROPHY [None]
